FAERS Safety Report 8105310-2 (Version None)
Quarter: 2012Q1

REPORT INFORMATION
  Report Type: 
  Country: None (occurrence: None)
  Receive Date: 20120201
  Receipt Date: 20120127
  Transmission Date: 20120608
  Serious: Yes (Death, Life-Threatening, Other)
  Sender: FDA-Public Use
  Company Number: PHHY2011JP91770

PATIENT
  Sex: Male
  Weight: 58 kg

DRUGS (11)
  1. ZOMETA [Suspect]
     Indication: METASTASES TO BONE
     Dosage: 4 MG, (PER ADMINISTRATION)
     Route: 041
     Dates: start: 20111013, end: 20111013
  2. NOVAMIN [Concomitant]
     Indication: CANCER PAIN
     Dosage: 5 MG, UNK
     Route: 042
     Dates: start: 20111011
  3. INTRALIPID 10% [Concomitant]
     Dates: start: 20111013, end: 20111013
  4. TPN ELECTROLYTES IN PLASTIC CONTAINER [Concomitant]
     Dates: start: 20111011, end: 20111013
  5. VEEN D [Concomitant]
     Dates: start: 20111011, end: 20111013
  6. ASCORBIC ACID [Concomitant]
     Dates: start: 20111011, end: 20111013
  7. MORPHINE [Concomitant]
     Indication: CANCER PAIN
     Dosage: 40 MG, UNK
     Route: 042
     Dates: start: 20111013
  8. FLURBIPROFEN [Concomitant]
     Dosage: 50 MG, UNK
     Route: 041
     Dates: start: 20111012, end: 20111012
  9. VITAMEDIN CAPSULE [Concomitant]
     Dates: start: 20111011, end: 20111013
  10. FAMOTIDINE [Concomitant]
     Dates: start: 20111011, end: 20111013
  11. SODIUM CHLORIDE SOLUTION [Concomitant]
     Dates: start: 20111012, end: 20111013

REACTIONS (12)
  - NEOPLASM MALIGNANT [None]
  - ANXIETY [None]
  - DEPRESSED LEVEL OF CONSCIOUSNESS [None]
  - BLOOD URINE PRESENT [None]
  - NEOPLASM PROGRESSION [None]
  - APNOEA [None]
  - BLOOD PRESSURE DECREASED [None]
  - OXYGEN SATURATION DECREASED [None]
  - BLOOD ALKALINE PHOSPHATASE INCREASED [None]
  - HYPERHIDROSIS [None]
  - URINE OUTPUT DECREASED [None]
  - HEART RATE INCREASED [None]
